FAERS Safety Report 24575136 (Version 1)
Quarter: 2024Q4

REPORT INFORMATION
  Report Type: Spontaneous
  Country: MX (occurrence: MX)
  Receive Date: 20241104
  Receipt Date: 20241104
  Transmission Date: 20250115
  Serious: Yes (Other)
  Sender: THEA PHARMA INC.
  Company Number: MX-THEA-2024002424

PATIENT
  Age: 78 Year
  Sex: Female

DRUGS (4)
  1. LATANOPROST [Suspect]
     Active Substance: LATANOPROST
     Indication: Glaucoma
     Dosage: 1 DROP/ 24H IN LEFT EYE
     Route: 047
     Dates: start: 202402
  2. IDAPTAN/OD  (80mg) [Concomitant]
     Indication: Cardiac disorder
     Route: 048
     Dates: start: 2022
  3. ASPIRIN [Concomitant]
     Active Substance: ASPIRIN
     Indication: Cardiac disorder
     Route: 048
     Dates: start: 2022
  4. Lubricant (Eyestil  plus) [Concomitant]
     Indication: Dry eye
     Dosage: IN RIGHT EYE
     Route: 047
     Dates: start: 202402

REACTIONS (12)
  - Nephrolithiasis [Not Recovered/Not Resolved]
  - Haematochezia [Not Recovered/Not Resolved]
  - Gastritis [Not Recovered/Not Resolved]
  - Functional gastrointestinal disorder [Not Recovered/Not Resolved]
  - Condition aggravated [Not Recovered/Not Resolved]
  - Haematuria [Not Recovered/Not Resolved]
  - Nausea [Recovered/Resolved]
  - Abdominal distension [Recovered/Resolved]
  - Eructation [Not Recovered/Not Resolved]
  - Depression [Not Recovered/Not Resolved]
  - Cough [Unknown]
  - Exposure via mucosa [Unknown]

NARRATIVE: CASE EVENT DATE: 20240201
